FAERS Safety Report 23489816 (Version 2)
Quarter: 2024Q3

REPORT INFORMATION
  Report Type: Spontaneous
  Country: US (occurrence: US)
  Receive Date: 20240206
  Receipt Date: 20240830
  Transmission Date: 20241017
  Serious: No
  Sender: ROCHE
  Company Number: US-ROCHE-3272689

PATIENT
  Sex: Male

DRUGS (7)
  1. XOLAIR [Suspect]
     Active Substance: OMALIZUMAB
     Indication: Urticaria
     Dosage: XOLAIR SD PFS 150 MG/ML
     Route: 058
     Dates: start: 20220902
  2. XOLAIR [Suspect]
     Active Substance: OMALIZUMAB
     Route: 058
     Dates: start: 202209
  3. PREDNISONE [Concomitant]
     Active Substance: PREDNISONE
  4. DUPIXENT [Concomitant]
     Active Substance: DUPILUMAB
     Indication: Neurodermatitis
  5. DUPIXENT [Concomitant]
     Active Substance: DUPILUMAB
     Indication: Asthma
  6. FEXOFENADINE [Concomitant]
     Active Substance: FEXOFENADINE HYDROCHLORIDE
  7. CETIRIZINE [Concomitant]
     Active Substance: CETIRIZINE HYDROCHLORIDE

REACTIONS (7)
  - Pruritus [Unknown]
  - COVID-19 [Unknown]
  - Hypersensitivity [Unknown]
  - Off label use [Unknown]
  - Urticaria [Unknown]
  - Erythema [Unknown]
  - Skin burning sensation [Unknown]
